FAERS Safety Report 9457525 (Version 1)
Quarter: 2013Q3

REPORT INFORMATION
  Report Type: Spontaneous
  Country: US (occurrence: None)
  Receive Date: 20130809
  Receipt Date: 20130809
  Transmission Date: 20140515
  Serious: Yes (Hospitalization)
  Sender: FDA-Public Use
  Company Number: FK201303013

PATIENT
  Age: 60 Year
  Sex: Male

DRUGS (6)
  1. HALOPERIDOL DECANOATE [Suspect]
     Indication: SCHIZOPHRENIA
     Route: 030
  2. OLANZAPINE [Suspect]
     Indication: SCHIZOPHRENIA
  3. DIVALPROEX (VALPROATE SEMISODIUM) [Concomitant]
  4. AMPICILLIN [Concomitant]
  5. LORAZEPAM [Concomitant]
  6. OSELTAMIVIR [Concomitant]

REACTIONS (8)
  - Neuroleptic malignant syndrome [None]
  - Lobar pneumonia [None]
  - Mental status changes [None]
  - Stupor [None]
  - Tachycardia [None]
  - Confusional state [None]
  - Liver function test abnormal [None]
  - Influenza A virus test positive [None]
